FAERS Safety Report 24334439 (Version 1)
Quarter: 2024Q3

REPORT INFORMATION
  Report Type: Spontaneous
  Country: US (occurrence: None)
  Receive Date: 20240918
  Receipt Date: 20240918
  Transmission Date: 20241016
  Serious: Yes (unspecified)
  Sender: Public
  Company Number: None

PATIENT
  Age: 65 Year
  Sex: Female

DRUGS (1)
  1. KISQALI [Suspect]
     Active Substance: RIBOCICLIB
     Indication: Breast cancer female
     Dosage: ?1 DAILY FOR 21 DAYS ON THEN 7 DAYS OFF?

REACTIONS (4)
  - Atrial fibrillation [None]
  - White blood cell count decreased [None]
  - Fatigue [None]
  - Alopecia [None]
